FAERS Safety Report 21118607 (Version 2)
Quarter: 2022Q3

REPORT INFORMATION
  Report Type: Report from Study
  Country: DE (occurrence: DE)
  Receive Date: 20220722
  Receipt Date: 20220817
  Transmission Date: 20221027
  Serious: Yes (Hospitalization)
  Sender: FDA-Public Use
  Company Number: DE-JNJFOC-20220730701

PATIENT
  Age: 61 Year
  Sex: Female
  Weight: 72.8 kg

DRUGS (22)
  1. ESKETAMINE [Suspect]
     Active Substance: ESKETAMINE
     Indication: Depression
     Dosage: 25 DOSES
     Dates: start: 20170803, end: 20180117
  2. ESKETAMINE [Suspect]
     Active Substance: ESKETAMINE
     Dosage: MOST RECENT DOSE
     Dates: start: 20220711
  3. DAFIRO HCT [Concomitant]
     Active Substance: AMLODIPINE\HYDROCHLOROTHIAZIDE\VALSARTAN
     Indication: Hypertension
     Dosage: 100 160 12.5
     Route: 048
  4. LEVOTHYROXINE SODIUM [Concomitant]
     Active Substance: LEVOTHYROXINE SODIUM
     Indication: Hypothyroidism
     Route: 048
  5. SIMVASTATIN [Concomitant]
     Active Substance: SIMVASTATIN
     Indication: Hypercholesterolaemia
     Route: 048
  6. PANTOPRAZOLE [Concomitant]
     Active Substance: PANTOPRAZOLE
     Indication: Prophylaxis
     Route: 048
  7. OPIPRAMOL [Concomitant]
     Active Substance: OPIPRAMOL
     Indication: Depression
     Route: 048
  8. NASIVIN [OXYMETAZOLINE HYDROCHLORIDE] [Concomitant]
     Indication: Nasopharyngitis
     Dosage: 1 PUFF
     Route: 045
  9. ALPRAZOLAM [Concomitant]
     Active Substance: ALPRAZOLAM
     Indication: Panic attack
     Route: 048
  10. DULOXETINE [Concomitant]
     Active Substance: DULOXETINE
     Indication: Depression
     Route: 048
  11. CELECOXIB [Concomitant]
     Active Substance: CELECOXIB
     Indication: Osteoarthritis
     Route: 048
  12. CLINDAMYCIN HYDROCHLORIDE [Concomitant]
     Active Substance: CLINDAMYCIN HYDROCHLORIDE
     Indication: Pulpitis dental
     Route: 048
  13. ACETYLCYSTEINE [Concomitant]
     Active Substance: ACETYLCYSTEINE
     Indication: Bronchitis
     Route: 048
  14. HERBALS [Concomitant]
     Active Substance: HERBALS
     Indication: Bronchitis
     Dosage: 1 TABLET
     Route: 048
  15. CEFUROXIME AXETIL [Concomitant]
     Active Substance: CEFUROXIME AXETIL
     Indication: Pneumonia
     Route: 048
  16. INFLUVAC TETRA [Concomitant]
     Active Substance: INFLUENZA VIRUS VACCINE QUADRIVALENT TYPE A+B
     Indication: Prophylaxis
     Dosage: SEASON 2020/2021
     Route: 030
  17. COVID-19 VACCINE NOS [Concomitant]
     Active Substance: COVID-19 VACCINE NOS
     Indication: Prophylaxis
     Dosage: LOTABV2856?LOTABW9941
     Route: 030
  18. PYLERA [Concomitant]
     Active Substance: BISMUTH SUBCITRATE POTASSIUM\METRONIDAZOLE\TETRACYCLINE HYDROCHLORIDE
     Indication: Helicobacter infection
     Dosage: 3 TABLETS?140 MG/125 MG/125 MG
     Route: 048
  19. OMEPRAZOLE [Concomitant]
     Active Substance: OMEPRAZOLE
     Indication: Helicobacter infection
     Route: 048
  20. VAXIGRIP [Concomitant]
     Active Substance: INFLUENZA VIRUS VACCINE
     Indication: Prophylaxis
     Route: 030
  21. COMIRNATY [Concomitant]
     Active Substance: TOZINAMERAN
     Indication: Prophylaxis
     Route: 030
  22. BUDESONIDE [Concomitant]
     Active Substance: BUDESONIDE
     Indication: Gastrointestinal disorder
     Route: 048

REACTIONS (1)
  - Peripheral arterial occlusive disease [Recovered/Resolved]

NARRATIVE: CASE EVENT DATE: 20220712
